FAERS Safety Report 25436090 (Version 2)
Quarter: 2025Q3

REPORT INFORMATION
  Report Type: Spontaneous
  Country: US (occurrence: US)
  Receive Date: 20250614
  Receipt Date: 20250817
  Transmission Date: 20251021
  Serious: No
  Sender: SANOFI AVENTIS
  Company Number: US-SA-2025SA167347

PATIENT
  Age: 85 Year
  Sex: Female

DRUGS (2)
  1. DUPIXENT [Suspect]
     Active Substance: DUPILUMAB
     Indication: Eczema
     Route: 058
     Dates: start: 20250527, end: 20250527
  2. DUPIXENT [Suspect]
     Active Substance: DUPILUMAB
     Dosage: 300 MG, QOW
     Route: 058
     Dates: start: 2025

REACTIONS (3)
  - Injection site pain [Recovered/Resolved]
  - Eczema [Recovering/Resolving]
  - Pruritus [Unknown]

NARRATIVE: CASE EVENT DATE: 20250101
